FAERS Safety Report 20950984 (Version 3)
Quarter: 2023Q1

REPORT INFORMATION
  Report Type: Spontaneous
  Country: JP (occurrence: JP)
  Receive Date: 20220613
  Receipt Date: 20230203
  Transmission Date: 20230418
  Serious: Yes (Other)
  Sender: FDA-Public Use
  Company Number: JP-PFIZER INC-202200778788

PATIENT
  Age: 15 Year
  Sex: Male

DRUGS (2)
  1. METHOTREXATE SODIUM [Suspect]
     Active Substance: METHOTREXATE SODIUM
     Indication: Prophylaxis
     Dosage: 5 G/M2
     Route: 042
  2. METHOTREXATE SODIUM [Suspect]
     Active Substance: METHOTREXATE SODIUM
     Dosage: 12 MG/DOSE EVERY 2 WEEKS FOR 4 DOSES
     Route: 037

REACTIONS (8)
  - Leukoencephalopathy [Recovered/Resolved]
  - Altered state of consciousness [Recovered/Resolved]
  - Dyslalia [Recovered/Resolved]
  - Memory impairment [Recovered/Resolved]
  - Dysphagia [Recovered/Resolved]
  - Paresis [Recovered/Resolved]
  - Monoparesis [Recovered/Resolved]
  - Movement disorder [Recovered/Resolved]
